FAERS Safety Report 8308157-7 (Version None)
Quarter: 2012Q2

REPORT INFORMATION
  Report Type: 
  Country: None (occurrence: None)
  Receive Date: 20120424
  Receipt Date: 20120417
  Transmission Date: 20120825
  Serious: Yes (Hospitalization, Other)
  Sender: FDA-Public Use
  Company Number: CA-UCBSA-046546

PATIENT
  Age: 83 Year
  Sex: Female
  Weight: 76.4 kg

DRUGS (7)
  1. HYDROCHLOROTHIAZIDE [Concomitant]
     Dosage: UNKNOWN DOSE
  2. OMEPRAZOLE [Concomitant]
     Dosage: UNKNOWN DOSE
  3. ATENOLOL [Concomitant]
     Dosage: UNKNOWN DOSE
  4. COUMADIN [Concomitant]
     Dosage: UNKNOWN
  5. CIMZIA [Suspect]
     Indication: RHEUMATOID ARTHRITIS
     Route: 058
  6. FUROSEMIDE [Concomitant]
     Dosage: UNKNOWN DOSE
  7. METHOTREXATE [Concomitant]
     Indication: RHEUMATOID ARTHRITIS
     Dosage: DOSE PER INTAKE:15MG
     Route: 048

REACTIONS (1)
  - CHOLECYSTITIS INFECTIVE [None]
